FAERS Safety Report 17645905 (Version 2)
Quarter: 2021Q1

REPORT INFORMATION
  Report Type: Spontaneous
  Country: IN (occurrence: IN)
  Receive Date: 20200408
  Receipt Date: 20210119
  Transmission Date: 20210419
  Serious: Yes (Hospitalization)
  Sender: FDA-Public Use
  Company Number: IN-TORRENT-00002497

PATIENT
  Age: 11 Year
  Sex: Male
  Weight: 40 kg

DRUGS (1)
  1. PANTOPRAZOLE [Suspect]
     Active Substance: PANTOPRAZOLE
     Indication: GASTROOESOPHAGEAL REFLUX DISEASE
     Dosage: 30 MINUTES BEFORE MEALS
     Route: 048

REACTIONS (1)
  - Pancreatitis acute [Recovering/Resolving]
